FAERS Safety Report 6754782-4 (Version None)
Quarter: 2010Q2

REPORT INFORMATION
  Report Type: 
  Country: None (occurrence: None)
  Receive Date: 20100603
  Receipt Date: 20100526
  Transmission Date: 20101027
  Serious: Yes (Hospitalization)
  Sender: FDA-Public Use
  Company Number: US-BAXTER-2010BH012871

PATIENT
  Age: 53 Year
  Sex: Male

DRUGS (4)
  1. DIANEAL [Suspect]
     Indication: PERITONEAL DIALYSIS
     Route: 033
     Dates: start: 20080910
  2. AMLODIPINE [Concomitant]
     Indication: HYPERTENSION
     Route: 065
  3. SIMVASTATIN [Concomitant]
     Indication: HYPERTENSION
     Route: 065
  4. PRILOSEC [Concomitant]
     Indication: GASTROOESOPHAGEAL REFLUX DISEASE
     Route: 065

REACTIONS (3)
  - DEHYDRATION [None]
  - SEPSIS [None]
  - VOMITING [None]
